FAERS Safety Report 7344875-5 (Version None)
Quarter: 2011Q1

REPORT INFORMATION
  Report Type: 
  Country: None (occurrence: None)
  Receive Date: 20110228
  Receipt Date: 20110211
  Transmission Date: 20110831
  Serious: Yes (Hospitalization)
  Sender: FDA-Public Use
  Company Number: 012234

PATIENT
  Age: 17 Year
  Sex: Male
  Weight: 58.1 kg

DRUGS (3)
  1. LEVETIRACETAM [Suspect]
     Indication: PARTIAL SEIZURES
     Dosage: (2250 MG) ; (3000 MG)
     Dates: start: 20060101
  2. LEVETIRACETAM [Suspect]
     Indication: PARTIAL SEIZURES
     Dosage: (2250 MG) ; (3000 MG)
     Dates: start: 20060101, end: 20060101
  3. LAMOTRIGINES [Concomitant]

REACTIONS (1)
  - ATONIC SEIZURES [None]
